FAERS Safety Report 8333494-X (Version None)
Quarter: 2012Q2

REPORT INFORMATION
  Report Type: 
  Country: None (occurrence: None)
  Receive Date: 20120503
  Receipt Date: 20120501
  Transmission Date: 20120825
  Serious: No
  Sender: FDA-Public Use
  Company Number: US-PFIZER INC-2012062259

PATIENT
  Sex: Female
  Weight: 100 kg

DRUGS (3)
  1. LANTUS [Concomitant]
     Indication: DIABETES MELLITUS
     Dosage: 26 IU, DAILY
  2. FLECTOR [Suspect]
     Indication: PAIN
     Dosage: TWO TIMES A DAY
     Dates: start: 20120227
  3. GLIPIZIDE [Concomitant]
     Indication: DIABETES MELLITUS
     Dosage: 10 MG, DAILY

REACTIONS (1)
  - DRUG INEFFECTIVE [None]
